FAERS Safety Report 9626615 (Version 1)
Quarter: 2013Q4

REPORT INFORMATION
  Report Type: Spontaneous
  Country: ES (occurrence: ES)
  Receive Date: 20131016
  Receipt Date: 20131016
  Transmission Date: 20140711
  Serious: Yes (Other)
  Sender: FDA-Public Use
  Company Number: ES-ABBVIE-13P-144-1158500-00

PATIENT
  Age: 65 Year
  Sex: Male

DRUGS (1)
  1. KLACID [Suspect]
     Indication: BRONCHITIS
     Route: 048
     Dates: start: 20130218, end: 20130219

REACTIONS (1)
  - Angioedema [Recovered/Resolved]
